FAERS Safety Report 7583853-8 (Version None)
Quarter: 2011Q2

REPORT INFORMATION
  Report Type: 
  Country: None (occurrence: None)
  Receive Date: 20110630
  Receipt Date: 20110617
  Transmission Date: 20111010
  Serious: Yes (Hospitalization)
  Sender: FDA-Public Use
  Company Number: US-JNJFOC-20110609323

PATIENT
  Sex: Male
  Weight: 57.2 kg

DRUGS (2)
  1. REMICADE [Suspect]
     Indication: CROHN'S DISEASE
     Route: 042
     Dates: start: 20071010, end: 20080930
  2. HUMIRA [Concomitant]
     Indication: CROHN'S DISEASE
     Dates: start: 20081017

REACTIONS (1)
  - PANCREATITIS [None]
